FAERS Safety Report 8377810-1 (Version None)
Quarter: 2012Q2

REPORT INFORMATION
  Report Type: 
  Country: None (occurrence: None)
  Receive Date: 20120522
  Receipt Date: 20120510
  Transmission Date: 20120825
  Serious: Yes (Other)
  Sender: FDA-Public Use
  Company Number: US-JNJFOC-20120511674

PATIENT
  Sex: Male
  Weight: 129.28 kg

DRUGS (12)
  1. FISH OIL [Concomitant]
     Indication: BLOOD TRIGLYCERIDES
     Route: 048
     Dates: start: 20110101
  2. FISH OIL [Concomitant]
     Indication: BLOOD CHOLESTEROL
     Route: 048
     Dates: start: 20110101
  3. REMICADE [Suspect]
     Indication: RHEUMATOID ARTHRITIS
     Route: 042
     Dates: start: 20120401
  4. ASCORBIC ACID [Concomitant]
     Indication: ROUTINE HEALTH MAINTENANCE
     Route: 048
  5. REMICADE [Suspect]
     Route: 042
     Dates: start: 20120101
  6. VITAMIN E (TOCOPHERYL ACETATE) [Concomitant]
     Indication: CARDIAC DISORDER
     Route: 048
     Dates: start: 20110101
  7. UNKNOWN MEDICATION [Suspect]
     Indication: HYPOKINESIA
     Route: 065
     Dates: start: 20120101, end: 20120101
  8. UNKNOWN MEDICATION [Suspect]
     Indication: SWELLING
     Route: 065
     Dates: start: 20120101, end: 20120101
  9. UNKNOWN MEDICATION [Suspect]
     Indication: PAIN
     Route: 065
     Dates: start: 20120101, end: 20120101
  10. MEN MULTIVITAMINS [Concomitant]
     Route: 048
  11. REMICADE [Suspect]
     Route: 042
     Dates: start: 20110101, end: 20120101
  12. CALCIUM [Concomitant]
     Indication: BONE DISORDER
     Route: 048

REACTIONS (13)
  - HYPERSENSITIVITY [None]
  - INFECTION [None]
  - JOINT LOCK [None]
  - ARTHROPATHY [None]
  - BLISTER [None]
  - DISCOMFORT [None]
  - FEELING HOT [None]
  - INFUSION RELATED REACTION [None]
  - PAIN [None]
  - HYPOKINESIA [None]
  - SWELLING [None]
  - ERYTHEMA [None]
  - PHARYNGEAL OEDEMA [None]
